FAERS Safety Report 7250442-4 (Version None)
Quarter: 2011Q1

REPORT INFORMATION
  Report Type: 
  Country: None (occurrence: None)
  Receive Date: 20110128
  Receipt Date: 20110119
  Transmission Date: 20110831
  Serious: Yes (Hospitalization)
  Sender: FDA-Public Use
  Company Number: US-ASTRAZENECA-2011SE03662

PATIENT
  Age: 63 Year
  Sex: Female

DRUGS (4)
  1. TOPROL-XL [Suspect]
     Route: 048
  2. CRESTOR [Suspect]
     Route: 048
  3. NEXIUM [Suspect]
     Route: 048
  4. SYMBICORT [Suspect]
     Dosage: 160/4.5 MCG 1 PUFF BID
     Route: 055

REACTIONS (1)
  - SPINAL FRACTURE [None]
